FAERS Safety Report 10208504 (Version 6)
Quarter: 2014Q4

REPORT INFORMATION
  Report Type: Report from Study
  Country: CH (occurrence: CH)
  Receive Date: 20140530
  Receipt Date: 20141216
  Transmission Date: 20150528
  Serious: Yes (Life-Threatening, Hospitalization)
  Sender: FDA-Public Use
  Company Number: CH-AMGEN-CHECT2014040306

PATIENT
  Age: 56 Year
  Sex: Male
  Weight: 66.5 kg

DRUGS (15)
  1. ROPINIROL [Concomitant]
     Dosage: 2 MG, UNK
     Route: 048
     Dates: start: 20131224
  2. DIALVIT [Concomitant]
     Dosage: UNK
     Route: 048
     Dates: start: 20140430, end: 20140514
  3. ROCALTROL [Concomitant]
     Active Substance: CALCITRIOL
     Dosage: 0.25 MUG, UNK
     Route: 048
     Dates: start: 20140430, end: 20140514
  4. CORDARONE [Concomitant]
     Active Substance: AMIODARONE HYDROCHLORIDE
     Dosage: 200 MG, UNK
     Route: 048
     Dates: start: 20020104
  5. CALCIUM ACETATE. [Concomitant]
     Active Substance: CALCIUM ACETATE
     Dosage: 1600 MG, UNK
     Route: 048
     Dates: start: 20110620
  6. MAGNESIUM [Concomitant]
     Active Substance: MAGNESIUM
     Dosage: 5 UNK, UNK
     Route: 048
     Dates: start: 20100517
  7. LISINOPRIL. [Concomitant]
     Active Substance: LISINOPRIL
     Dosage: 2.5 MG, UNK
     Route: 048
     Dates: start: 20090104
  8. CINACALCET HCL [Suspect]
     Active Substance: CINACALCET HYDROCHLORIDE
     Indication: HYPERPARATHYROIDISM SECONDARY
     Dosage: 15 MG, UNK
     Route: 065
     Dates: start: 20140226, end: 20140528
  9. CARVEDILOL. [Concomitant]
     Active Substance: CARVEDILOL
     Dosage: 3.125 MG, UNK
     Route: 048
     Dates: start: 20090204
  10. LEVOTHYROXIN [Concomitant]
     Active Substance: LEVOTHYROXINE
     Dosage: 50 MUG, UNK
     Route: 048
     Dates: start: 20111007
  11. ACENOCOUMAROL [Concomitant]
     Active Substance: ACENOCOUMAROL
     Dosage: 1 MG, UNK
     Route: 048
     Dates: start: 20020320
  12. SEVELAMER [Concomitant]
     Active Substance: SEVELAMER
     Dosage: 1600 MG, UNK
     Route: 048
     Dates: start: 20100512
  13. FUROSEMIDE. [Concomitant]
     Active Substance: FUROSEMIDE
     Dosage: 500 MG, UNK
     Route: 048
     Dates: start: 20081124
  14. BROMAZEPAM [Concomitant]
     Active Substance: BROMAZEPAM
     Dosage: 1.5 MG, UNK
     Route: 048
     Dates: start: 20100406
  15. DESLORATADINE. [Concomitant]
     Active Substance: DESLORATADINE
     Dosage: 5 MG, UNK
     Route: 048
     Dates: start: 20100912

REACTIONS (1)
  - Cardiac arrest [Recovered/Resolved]

NARRATIVE: CASE EVENT DATE: 20140528
